FAERS Safety Report 10781205 (Version 1)
Quarter: 2015Q1

REPORT INFORMATION
  Report Type: Spontaneous
  Country: JP (occurrence: JP)
  Receive Date: 20150210
  Receipt Date: 20150210
  Transmission Date: 20150721
  Serious: Yes (Other)
  Sender: FDA-Public Use
  Company Number: JP-TEVA-538339ISR

PATIENT
  Age: 75 Year
  Sex: Male

DRUGS (4)
  1. NAVELBINE [Concomitant]
     Active Substance: VINORELBINE TARTRATE
     Dosage: 20 MILLIGRAM DAILY;
     Route: 042
     Dates: start: 20140603, end: 20140603
  2. NAVELBINE [Concomitant]
     Active Substance: VINORELBINE TARTRATE
     Dosage: 20 MILLIGRAM DAILY;
     Route: 042
     Dates: start: 20140624, end: 20140624
  3. NAVELBINE [Concomitant]
     Active Substance: VINORELBINE TARTRATE
     Dosage: 20 MILLIGRAM DAILY;
     Route: 042
     Dates: start: 20140617, end: 20140617
  4. FILGRASTIM BS INJ.^NK^ (FILGRASTIM (GENETICAL RECOMBINATION)) [Suspect]
     Active Substance: FILGRASTIM
     Indication: NEUTROPENIA
     Dosage: 55 MICROGRAM/M2 DAILY;
     Route: 058
     Dates: start: 20140701, end: 20140703

REACTIONS (2)
  - Bronchitis [Recovered/Resolved]
  - Pneumonia [Recovered/Resolved]

NARRATIVE: CASE EVENT DATE: 20140710
